FAERS Safety Report 6182880-5 (Version None)
Quarter: 2009Q2

REPORT INFORMATION
  Report Type: 
  Country: None (occurrence: None)
  Receive Date: 20090507
  Receipt Date: 20090429
  Transmission Date: 20091009
  Serious: Yes (Congenital Anomaly)
  Sender: FDA-Public Use
  Company Number: GB-BRISTOL-MYERS SQUIBB COMPANY-14613269

PATIENT

DRUGS (1)
  1. METFORMIN HCL [Suspect]
     Route: 064

REACTIONS (1)
  - TRANSPOSITION OF THE GREAT VESSELS [None]
